FAERS Safety Report 14939782 (Version 9)
Quarter: 2019Q2

REPORT INFORMATION
  Report Type: Spontaneous
  Country: US (occurrence: US)
  Receive Date: 20180525
  Receipt Date: 20190610
  Transmission Date: 20190711
  Serious: Yes (Other)
  Sender: FDA-Public Use
  Company Number: US-BRISTOL-MYERS SQUIBB COMPANY-BMS-2018-048138

PATIENT
  Sex: Female

DRUGS (1)
  1. ORENCIA [Suspect]
     Active Substance: ABATACEPT
     Indication: RHEUMATOID ARTHRITIS
     Dosage: 125 MG, QWK
     Route: 058
     Dates: start: 201809

REACTIONS (12)
  - Injection site erythema [Unknown]
  - Gallbladder disorder [Unknown]
  - Adverse event [Unknown]
  - Hiatus hernia [Unknown]
  - Malaise [Unknown]
  - Cataract [Unknown]
  - Nasopharyngitis [Unknown]
  - Fall [Unknown]
  - Eye pain [Unknown]
  - Product storage error [Unknown]
  - Inappropriate schedule of product administration [Unknown]
  - Dizziness [Unknown]
